FAERS Safety Report 6468293-7 (Version None)
Quarter: 2009Q4

REPORT INFORMATION
  Report Type: 
  Country: None (occurrence: None)
  Receive Date: 20091130
  Receipt Date: 20091109
  Transmission Date: 20100525
  Serious: Yes (Hospitalization)
  Sender: FDA-Public Use
  Company Number: 2009AL007173

PATIENT
  Age: 51 Year
  Sex: Male

DRUGS (2)
  1. PROPYLTHIOURACIL TAB [Suspect]
     Indication: HYPERTENSION
  2. PEGYLATED INTERFERON [Concomitant]

REACTIONS (3)
  - DIARRHOEA [None]
  - HEPATITIS CHOLESTATIC [None]
  - PALPITATIONS [None]
